FAERS Safety Report 20707202 (Version 5)
Quarter: 2023Q2

REPORT INFORMATION
  Report Type: Spontaneous
  Country: US (occurrence: US)
  Receive Date: 20220413
  Receipt Date: 20230405
  Transmission Date: 20230722
  Serious: No
  Sender: FDA-Public Use
  Company Number: US-PFIZER INC-202101133623

PATIENT
  Age: 59 Year
  Sex: Female
  Weight: 93.424 kg

DRUGS (10)
  1. IBRANCE [Suspect]
     Active Substance: PALBOCICLIB
     Indication: Breast cancer female
     Dosage: DAILY FOR 21 DAYS ON, 7 DAYS OFF/ TAKE 1 TABLET DAILY ON DAYS 1 THROUGH 21 OF EACH 28 DAYS CYCLE
     Route: 048
     Dates: start: 20190222, end: 20221009
  2. IBRANCE [Suspect]
     Active Substance: PALBOCICLIB
     Dosage: DAILY FOR 21 DAYS ON, 7 DAYS OFF
     Route: 048
     Dates: start: 20221031, end: 202301
  3. ATORVASTATIN CALCIUM [Concomitant]
     Active Substance: ATORVASTATIN CALCIUM
     Dosage: UNK
  4. LETROZOLE [Concomitant]
     Active Substance: LETROZOLE
     Dosage: UNK
  5. LISINOPRIL [Concomitant]
     Active Substance: LISINOPRIL
     Dosage: UNK
  6. SEROQUEL [Concomitant]
     Active Substance: QUETIAPINE FUMARATE
     Dosage: UNK
  7. ASPIRIN [Concomitant]
     Active Substance: ASPIRIN
     Dosage: UNK
  8. ROSUVASTATIN CALCIUM [Concomitant]
     Active Substance: ROSUVASTATIN CALCIUM
     Dosage: UNK
  9. VITAMIN D3 [Concomitant]
     Active Substance: CHOLECALCIFEROL
     Dosage: UNK
  10. XGEVA [Concomitant]
     Active Substance: DENOSUMAB
     Dosage: UNK

REACTIONS (4)
  - Mental disorder [Unknown]
  - Urinary tract infection [Recovered/Resolved]
  - Decreased immune responsiveness [Not Recovered/Not Resolved]
  - Product dose omission issue [Unknown]

NARRATIVE: CASE EVENT DATE: 20221009
